FAERS Safety Report 8701544 (Version 3)
Quarter: 2013Q4

REPORT INFORMATION
  Report Type: Spontaneous
  Country: US (occurrence: US)
  Receive Date: 20120803
  Receipt Date: 20131101
  Transmission Date: 20140711
  Serious: No
  Sender: FDA-Public Use
  Company Number: US-009507513-1207USA011586

PATIENT
  Age: 75 Year
  Sex: Male
  Weight: 77.98 kg

DRUGS (27)
  1. JANUMET [Suspect]
     Indication: DIABETES MELLITUS
     Dosage: 500/50 MG, BID
     Route: 048
     Dates: start: 20111031, end: 20120724
  2. LEVITRA [Concomitant]
     Dosage: 1/2-1 DF, QD
     Route: 048
     Dates: start: 20120529
  3. FIORICET [Concomitant]
     Dosage: 1-2 DF, QD
     Route: 048
     Dates: start: 20120821
  4. TRAZODONE HYDROCHLORIDE [Concomitant]
     Dosage: 1/2-1 DF, HS
     Route: 048
     Dates: start: 20120821
  5. LANTUS [Concomitant]
     Dosage: 20 UNITS/ML, HS
     Route: 058
     Dates: start: 20120807
  6. CYMBALTA [Concomitant]
     Dosage: 1 DF, QD
     Route: 048
     Dates: start: 20110721
  7. GABAPENTIN [Concomitant]
     Dosage: 1 DF, QD
     Route: 048
     Dates: start: 20110721
  8. BYSTOLIC [Concomitant]
     Dosage: 1 DF, QD
     Route: 048
  9. AMLODIPINE [Concomitant]
     Dosage: UNK
     Dates: start: 20111230
  10. PROAIR HFA [Concomitant]
     Dosage: UNK
     Route: 055
     Dates: start: 20120626
  11. OMEPRAZOLE [Concomitant]
     Dosage: 1 DF, BID
     Route: 048
     Dates: start: 20110721
  12. ZOSTAVAX [Concomitant]
     Indication: PROPHYLAXIS
     Route: 058
     Dates: start: 20120611, end: 20120611
  13. DIFLUCAN [Concomitant]
     Dosage: 1 DF, QD
     Route: 048
     Dates: start: 20120514
  14. LIDOCAINE [Concomitant]
     Dosage: 1 TSP, QID
     Dates: start: 20120514
  15. TESTOSTERONE CYPIONATE [Concomitant]
     Dosage: 1 ML, QOW
     Route: 030
     Dates: start: 20120514
  16. ACTOS [Concomitant]
     Dosage: 1 DF, QD
     Route: 048
     Dates: start: 20120514
  17. GLIPIZIDE [Concomitant]
     Dosage: 1 DF, QD
     Route: 048
     Dates: start: 20120514
  18. AMITRIPTYLINE HYDROCHLORIDE [Concomitant]
     Dosage: 1 DF, HS
     Route: 048
     Dates: start: 20120208
  19. CETIRIZINE HYDROCHLORIDE [Concomitant]
     Dosage: 1 DF, HS
     Route: 048
     Dates: start: 20111017
  20. KOMBIGLYZE XR [Concomitant]
     Dosage: 1 DF, QD
     Dates: start: 20111020
  21. NORVASC [Concomitant]
     Dosage: 1 DF, QD
     Route: 048
     Dates: start: 20110923
  22. LUNESTA [Concomitant]
     Dosage: 1 DF, HS
     Route: 048
     Dates: start: 20110923
  23. ADVAIR [Concomitant]
     Dosage: UNK, TID
     Route: 055
     Dates: start: 20110923
  24. ALBUTEROL [Concomitant]
  25. ZYRTEC [Concomitant]
  26. PNEUMOVAX23 [Concomitant]
     Indication: PROPHYLAXIS
     Dates: start: 2011, end: 2011
  27. JANUVIA [Concomitant]
     Dosage: 1 DF, QD
     Dates: start: 20120424

REACTIONS (4)
  - Paraesthesia oral [Recovered/Resolved]
  - Hypoaesthesia oral [Recovered/Resolved]
  - Swollen tongue [Recovered/Resolved]
  - Diarrhoea [Recovered/Resolved]
